FAERS Safety Report 20413034 (Version 1)
Quarter: 2022Q1

REPORT INFORMATION
  Report Type: Spontaneous
  Country: VN (occurrence: VN)
  Receive Date: 20220201
  Receipt Date: 20220201
  Transmission Date: 20220423
  Serious: Yes (Hospitalization, Other)
  Sender: FDA-Public Use
  Company Number: VN-BAXTER-2022BAX001882

PATIENT
  Sex: Female

DRUGS (1)
  1. SEVOFLURANE [Suspect]
     Active Substance: SEVOFLURANE
     Indication: Product used for unknown indication
     Dosage: 2-3%, ROUTE: INHALATION
     Route: 065
     Dates: start: 20220122, end: 20220124

REACTIONS (5)
  - Feeling cold [Recovered/Resolved]
  - Chills [Recovered/Resolved]
  - Arrhythmia [Recovered/Resolved]
  - Extrasystoles [Recovered/Resolved]
  - Tachycardia [Recovered/Resolved]

NARRATIVE: CASE EVENT DATE: 20220122
